FAERS Safety Report 18004917 (Version 2)
Quarter: 2020Q4

REPORT INFORMATION
  Report Type: Not Available
  Country: US (occurrence: US)
  Receive Date: 20200709
  Receipt Date: 20201014
  Transmission Date: 20210113
  Serious: No
  Sender: FDA-Public Use
  Company Number: US-NEUROCRINE BIOSCIENCES INC.-2020NBI02202

PATIENT
  Age: 65 Year
  Sex: Male

DRUGS (12)
  1. DEPAKOTE [Concomitant]
     Active Substance: DIVALPROEX SODIUM
  2. VITAMIN C [Concomitant]
     Active Substance: ASCORBIC ACID
  3. INGREZZA [Suspect]
     Active Substance: VALBENAZINE
     Dosage: 2 X40 MG
     Route: 048
     Dates: start: 202004
  4. ROSUVASTATIN. [Concomitant]
     Active Substance: ROSUVASTATIN
  5. INGREZZA [Suspect]
     Active Substance: VALBENAZINE
     Indication: TARDIVE DYSKINESIA
     Route: 048
     Dates: start: 20200218
  6. LATUDA [Concomitant]
     Active Substance: LURASIDONE HYDROCHLORIDE
  7. GABAPENTIN. [Concomitant]
     Active Substance: GABAPENTIN
  8. BENZTROPINE. [Concomitant]
     Active Substance: BENZTROPINE
  9. VITAMIN D3 [Concomitant]
     Active Substance: CHOLECALCIFEROL
  10. LANTUS [Concomitant]
     Active Substance: INSULIN GLARGINE
  11. METHOTREXATE. [Concomitant]
     Active Substance: METHOTREXATE
  12. HUMALOG [Concomitant]
     Active Substance: INSULIN LISPRO

REACTIONS (1)
  - Constipation [Not Recovered/Not Resolved]

NARRATIVE: CASE EVENT DATE: 2020
